FAERS Safety Report 11055957 (Version 2)
Quarter: 2016Q2

REPORT INFORMATION
  Report Type: Spontaneous
  Country: US (occurrence: US)
  Receive Date: 20150422
  Receipt Date: 20160421
  Transmission Date: 20160815
  Serious: No
  Sender: FDA-Public Use
  Company Number: US-TEVA-550211USA

PATIENT
  Sex: Male

DRUGS (14)
  1. COLCRYS [Concomitant]
     Active Substance: COLCHICINE
     Dosage: ONE HALF DAILY
  2. CALCITRIOL. [Concomitant]
     Active Substance: CALCITRIOL
     Dosage: ONE DAILY PLUS ONE EVERY OTHER DAY
  3. CARBAMAZEPINE. [Concomitant]
     Active Substance: CARBAMAZEPINE
     Dosage: 400 MILLIGRAM DAILY;
  4. FE [Concomitant]
     Active Substance: IRON
     Dosage: 32.5 MILLIGRAM DAILY;
     Dates: start: 20150303
  5. ALLOPURINOL. [Concomitant]
     Active Substance: ALLOPURINOL
     Dosage: 100 MILLIGRAM DAILY;
  6. ARANESP [Concomitant]
     Active Substance: DARBEPOETIN ALFA
     Dosage: EVERY 2 WEEKS/DEPENDING ON HGB COUNT
  7. OMEPRAZOLE. [Concomitant]
     Active Substance: OMEPRAZOLE
     Dosage: 5 MILLIGRAM DAILY;
     Dates: end: 20150211
  8. OMEPRAZOLE. [Concomitant]
     Active Substance: OMEPRAZOLE
     Dosage: 20 MILLIGRAM DAILY;
  9. OMEPRAZOLE. [Concomitant]
     Active Substance: OMEPRAZOLE
     Dates: start: 20150212
  10. OMEPRAZOLE. [Concomitant]
     Active Substance: OMEPRAZOLE
     Dosage: 25 MILLIGRAM DAILY;
     Dates: start: 20100305
  11. VITAMIN D [Concomitant]
     Active Substance: CHOLECALCIFEROL
     Dosage: 2000 IU (INTERNATIONAL UNIT) DAILY;
     Dates: start: 201202
  12. ANAGRELIDE [Suspect]
     Active Substance: ANAGRELIDE
     Indication: ANTIPLATELET THERAPY
     Dosage: 9 PILLS/DAY: 5 IN A.M./4 IN P.M.
     Dates: start: 2010
  13. FUROSEMIDE. [Concomitant]
     Active Substance: FUROSEMIDE
     Dosage: 80 MILLIGRAM DAILY;
  14. TUMS [Concomitant]
     Active Substance: CALCIUM CARBONATE
     Dosage: ONE WITH EVERY MEAN
     Dates: start: 20150303

REACTIONS (2)
  - Platelet count increased [Unknown]
  - Pruritus [Unknown]
